FAERS Safety Report 8793849 (Version 4)
Quarter: 2015Q1

REPORT INFORMATION
  Report Type: Spontaneous
  Country: JP (occurrence: JP)
  Receive Date: 20120917
  Receipt Date: 20150123
  Transmission Date: 20150721
  Serious: Yes (Death)
  Sender: FDA-Public Use
  Company Number: PHHY2012JP079921

PATIENT
  Age: 90 Year
  Sex: Male

DRUGS (3)
  1. EXELON PATCH [Suspect]
     Active Substance: RIVASTIGMINE
     Indication: DEMENTIA
     Dosage: 4.5 MG, QD
     Route: 062
  2. EXELON PATCH [Suspect]
     Active Substance: RIVASTIGMINE
     Dosage: 9 MG, QD
     Route: 062
  3. EXELON PATCH [Suspect]
     Active Substance: RIVASTIGMINE
     Dosage: 13.5 MG, QD
     Route: 062

REACTIONS (1)
  - Lung neoplasm malignant [Fatal]
